FAERS Safety Report 21753431 (Version 1)
Quarter: 2022Q4

REPORT INFORMATION
  Report Type: Spontaneous
  Country: US (occurrence: None)
  Receive Date: 20221219
  Receipt Date: 20221219
  Transmission Date: 20230113
  Serious: No
  Sender: FDA-Public Use
  Company Number: None

PATIENT
  Sex: Female
  Weight: 66.22 kg

DRUGS (28)
  1. CAPECITABINE [Suspect]
     Active Substance: CAPECITABINE
     Indication: Oestrogen receptor assay positive
     Dosage: 1500MG TWICE DAILY ORAL 14DAYS ON, 7 D OFF?
     Route: 048
  2. ACARBOSE [Concomitant]
     Active Substance: ACARBOSE
  3. ACYCLOVIR [Concomitant]
     Active Substance: ACYCLOVIR
  4. ALBUTEROL SULFATE [Concomitant]
     Active Substance: ALBUTEROL SULFATE
  5. AMLODIPINE [Concomitant]
     Active Substance: AMLODIPINE BESYLATE
  6. ANASTROZOLE [Concomitant]
     Active Substance: ANASTROZOLE
  7. ATORVASTATIN [Concomitant]
     Active Substance: ATORVASTATIN
  8. BACLOFEN [Concomitant]
     Active Substance: BACLOFEN
  9. CARVEDILOL [Concomitant]
     Active Substance: CARVEDILOL
  10. CITALOPRAM [Concomitant]
     Active Substance: CITALOPRAM HYDROBROMIDE
  11. CLOPIDOGREL [Concomitant]
     Active Substance: CLOPIDOGREL BISULFATE
  12. COLACE [Concomitant]
     Active Substance: DOCUSATE SODIUM
  13. DEXAMETHASONE [Concomitant]
     Active Substance: DEXAMETHASONE
  14. ELIQUIS [Concomitant]
     Active Substance: APIXABAN
  15. FUROSEMIDE [Concomitant]
     Active Substance: FUROSEMIDE
  16. GABAPENTIN [Concomitant]
     Active Substance: GABAPENTIN
  17. GLIMEPIRIDE [Concomitant]
     Active Substance: GLIMEPIRIDE
  18. GUAIFENESIN [Concomitant]
     Active Substance: GUAIFENESIN
  19. IPRATROPIUM BROMIDE [Concomitant]
     Active Substance: IPRATROPIUM BROMIDE
  20. MAGNESIUM [Concomitant]
     Active Substance: MAGNESIUM
  21. METFORMIN [Concomitant]
     Active Substance: METFORMIN HYDROCHLORIDE
  22. OMEPRAZOLE [Concomitant]
     Active Substance: OMEPRAZOLE
  23. PENTOXIFYLLINE [Concomitant]
     Active Substance: PENTOXIFYLLINE
  24. PERCOCET [Concomitant]
     Active Substance: ACETAMINOPHEN\OXYCODONE HYDROCHLORIDE
  25. PROMETHAZINE-DM [Concomitant]
  26. SYMBICORT [Concomitant]
     Active Substance: BUDESONIDE\FORMOTEROL FUMARATE DIHYDRATE
  27. TYLENOL [Concomitant]
     Active Substance: ACETAMINOPHEN
  28. VOLTAREN [Concomitant]
     Active Substance: DICLOFENAC SODIUM

REACTIONS (1)
  - Hospice care [None]
